FAERS Safety Report 6857988-9 (Version None)
Quarter: 2010Q3

REPORT INFORMATION
  Report Type: 
  Country: None (occurrence: None)
  Receive Date: 20100715
  Receipt Date: 20100706
  Transmission Date: 20110219
  Serious: Yes (Hospitalization)
  Sender: FDA-Public Use
  Company Number: 015141

PATIENT
  Sex: Male
  Weight: 91 kg

DRUGS (4)
  1. CIMZIA [Suspect]
     Indication: CROHN'S DISEASE
     Dosage: SUBCUTANEOUS
     Route: 058
     Dates: start: 20090101, end: 20100301
  2. VITAMIN TAB [Concomitant]
  3. CRESTOR [Concomitant]
  4. COUMADIN [Concomitant]

REACTIONS (5)
  - ABSCESS [None]
  - BLOOD DISORDER [None]
  - FUNGAL INFECTION [None]
  - PULMONARY THROMBOSIS [None]
  - THROMBOSIS [None]
